FAERS Safety Report 10084918 (Version 1)
Quarter: 2014Q2

REPORT INFORMATION
  Report Type: Spontaneous
  Country: LT (occurrence: LT)
  Receive Date: 20140417
  Receipt Date: 20140417
  Transmission Date: 20141212
  Serious: Yes (Hospitalization)
  Sender: FDA-Public Use
  Company Number: PHHY2014LT042350

PATIENT
  Age: 49 Year
  Sex: Male

DRUGS (2)
  1. RIBAVIRIN [Suspect]
     Indication: CHRONIC HEPATITIS C
     Dosage: 1200 MG, DAILY
     Dates: start: 20070629
  2. PEGASYS [Suspect]
     Indication: CHRONIC HEPATITIS C
     Dosage: 180 MG/KG, QW
     Dates: start: 20070629

REACTIONS (9)
  - Optic ischaemic neuropathy [Recovering/Resolving]
  - Blindness transient [Recovering/Resolving]
  - Sudden visual loss [Recovering/Resolving]
  - Optic discs blurred [Recovering/Resolving]
  - Papilloedema [Recovered/Resolved]
  - Macular oedema [Recovering/Resolving]
  - Retinal exudates [Recovered/Resolved]
  - Optic disc vascular disorder [Recovering/Resolving]
  - Optic disc haemorrhage [Recovered/Resolved]
